FAERS Safety Report 10080093 (Version 1)
Quarter: 2014Q2

REPORT INFORMATION
  Report Type: Report from Study
  Country: US (occurrence: US)
  Receive Date: 20140415
  Receipt Date: 20140415
  Transmission Date: 20141212
  Serious: Yes (Other)
  Sender: FDA-Public Use
  Company Number: PHEH2014US007365

PATIENT
  Sex: Male
  Weight: 24.36 kg

DRUGS (8)
  1. TOBI PODHALER [Suspect]
     Indication: CYSTIC FIBROSIS
     Dosage: 112 MG, BID
     Route: 055
     Dates: start: 201306
  2. PULMOZYME [Concomitant]
     Dosage: UNK UKN, UNK
  3. CAYSTON [Concomitant]
     Dosage: UNK UKN, UNK
  4. CREON [Concomitant]
     Dosage: UNK UKN, UNK
  5. ZENPEP [Concomitant]
     Dosage: UNK UKN, UNK
  6. VITAMIN B [Concomitant]
     Dosage: UNK UKN, UNK
  7. VITAMIN E [Concomitant]
     Dosage: UNK UKN, UNK
  8. VITAMIN K [Concomitant]
     Dosage: UNK UKN, UNK

REACTIONS (2)
  - Pneumonia [Not Recovered/Not Resolved]
  - Pulmonary function test decreased [Not Recovered/Not Resolved]
